FAERS Safety Report 25153980 (Version 2)
Quarter: 2025Q2

REPORT INFORMATION
  Report Type: Spontaneous
  Country: DE (occurrence: DE)
  Receive Date: 20250403
  Receipt Date: 20250522
  Transmission Date: 20250717
  Serious: Yes (Hospitalization)
  Sender: ACCORD
  Company Number: None

PATIENT
  Sex: Male

DRUGS (5)
  1. METHOTREXATE [Suspect]
     Active Substance: METHOTREXATE
     Indication: Joint swelling
  2. RUXOLITINIB [Suspect]
     Active Substance: RUXOLITINIB
     Indication: Polycythaemia vera
     Dates: start: 2017
  3. DULOXETINE [Concomitant]
     Active Substance: DULOXETINE
     Indication: Depression
  4. BEMPEDOIC ACID [Concomitant]
     Active Substance: BEMPEDOIC ACID
     Indication: Dyslipidaemia
  5. RUXOLITINIB [Suspect]
     Active Substance: RUXOLITINIB
     Indication: Polycythaemia vera
     Dates: start: 2017

REACTIONS (6)
  - Dermatitis [Unknown]
  - Skin ulcer [Recovered/Resolved]
  - Joint swelling [Recovered/Resolved]
  - Rheumatoid factor increased [Recovered/Resolved]
  - Peripheral swelling [Recovered/Resolved]
  - Dyslipidaemia [Unknown]

NARRATIVE: CASE EVENT DATE: 20170101
